FAERS Safety Report 5147110-1 (Version None)
Quarter: 2006Q4

REPORT INFORMATION
  Report Type: 
  Country: None (occurrence: None)
  Receive Date: 20061103
  Receipt Date: 20061031
  Transmission Date: 20070319
  Serious: Yes (Hospitalization)
  Sender: FDA-Public Use
  Company Number: GXKR2004IT00775

PATIENT
  Age: 17 Year
  Sex: Male

DRUGS (4)
  1. CLARITHROMYCIN [Suspect]
     Indication: PYREXIA
     Dosage: SEE IMAGE
     Dates: start: 20011201
  2. CLARITHROMYCIN [Suspect]
     Indication: PYREXIA
     Dosage: SEE IMAGE
     Dates: start: 20020401
  3. AMOXICILLIN + CLAVULANIC ACID (AMOXICILLIN, CLAVULANIC ACID) [Concomitant]
  4. CEFOTAXIME SODIUM [Concomitant]

REACTIONS (4)
  - FULL BLOOD COUNT DECREASED [None]
  - HEADACHE [None]
  - PULMONARY EOSINOPHILIA [None]
  - RHINORRHOEA [None]
